FAERS Safety Report 18444719 (Version 1)
Quarter: 2020Q4

REPORT INFORMATION
  Report Type: Spontaneous
  Country: JP (occurrence: JP)
  Receive Date: 20201030
  Receipt Date: 20201030
  Transmission Date: 20210114
  Serious: Yes (Other)
  Sender: FDA-Public Use
  Company Number: JP-LUPIN PHARMACEUTICALS INC.-2020-08000

PATIENT
  Age: 57 Year
  Sex: Male

DRUGS (2)
  1. SALINE [SODIUM CHLORIDE] [Concomitant]
     Active Substance: SODIUM CHLORIDE
     Indication: VEHICLE SOLUTION USE
     Dosage: UNK (TRIAMCINOLONE WAS DILUTED TO A 50% CONCENTRATION WITH PHYSIOLOGICAL SODIUM CHLORIDE AND WAS INJ
     Route: 030
  2. TRIAMCINOLONE [Suspect]
     Active Substance: TRIAMCINOLONE
     Indication: PROPHYLAXIS
     Dosage: UNK (DILUTED TO A 50% CONCENTRATION WITH PHYSIOLOGICAL SODIUM CHLORIDE AND WAS INJECTED WITH 21-GUAG
     Route: 030

REACTIONS (1)
  - Chondritis [Recovering/Resolving]
